FAERS Safety Report 8064598-7 (Version None)
Quarter: 2012Q1

REPORT INFORMATION
  Report Type: 
  Country: None (occurrence: None)
  Receive Date: 20120123
  Receipt Date: 20120112
  Transmission Date: 20120608
  Serious: Yes (Death)
  Sender: FDA-Public Use
  Company Number: FR-MERCK-1201USA02678

PATIENT
  Age: 52 Year
  Sex: Male

DRUGS (5)
  1. VORICONAZOLE [Suspect]
     Indication: ASPERGILLOSIS
     Route: 065
  2. CANCIDAS [Suspect]
     Indication: ASPERGILLOSIS
     Route: 051
  3. AMPHOTERICIN B AND CHOLESTEROL AND DISTEAROYLPHOSPHATIDYLGLYCEROL AND [Suspect]
     Indication: ASPERGILLOSIS
     Route: 065
  4. CORTICOSTEROIDS (UNSPECIFIED) [Concomitant]
     Route: 065
  5. CANCIDAS [Suspect]
     Indication: PROPHYLAXIS
     Route: 051

REACTIONS (1)
  - DRUG INEFFECTIVE [None]
